FAERS Safety Report 4407062-6 (Version None)
Quarter: 2004Q3

REPORT INFORMATION
  Report Type: 
  Country: None (occurrence: None)
  Receive Date: 20040721
  Receipt Date: 20040630
  Transmission Date: 20050211
  Serious: No
  Sender: FDA-Public Use
  Company Number: F01200401676

PATIENT
  Age: 56 Year
  Sex: Male

DRUGS (8)
  1. (FONDAPARINUX SODIUM) - SOLUTION - UNIT DOSE : UNKNOWN [Suspect]
     Indication: SURGERY
     Dosage: 2.5 MG
     Route: 058
     Dates: start: 20040615, end: 20040629
  2. MORPHINE SULFATE [Concomitant]
  3. URBANYL (CLOBAZAM) [Concomitant]
  4. STILNOX (ZOLPIDEM) [Concomitant]
  5. FOLEX (FERROUS FUMARATE / FOLIC ACID) [Concomitant]
  6. OMEPRAZOLE [Concomitant]
  7. MYOLASTAN (TETRAZEPAM) [Concomitant]
  8. RIVOTRIL (CLONAZEPAM) [Concomitant]

REACTIONS (1)
  - THROMBOCYTHAEMIA [None]
